FAERS Safety Report 7250245-0 (Version None)
Quarter: 2011Q1

REPORT INFORMATION
  Report Type: 
  Country: None (occurrence: None)
  Receive Date: 20110128
  Receipt Date: 20110111
  Transmission Date: 20110831
  Serious: Yes (Hospitalization)
  Sender: FDA-Public Use
  Company Number: ES-BAYER-201022882GPV

PATIENT
  Sex: Male
  Weight: 71 kg

DRUGS (66)
  1. LEUCOVORINE [Suspect]
     Dosage: 800
     Route: 042
     Dates: start: 20100628, end: 20100628
  2. LEUCOVORINE [Suspect]
     Dosage: 800
     Route: 042
     Dates: start: 20100727, end: 20100727
  3. LEUCOVORINE [Suspect]
     Dosage: 800
     Route: 042
     Dates: start: 20100824, end: 20100824
  4. 5-FU [Suspect]
     Dosage: 800
     Route: 040
     Dates: start: 20100322
  5. 5-FU [Suspect]
     Dosage: 4800
     Route: 041
     Dates: start: 20100222, end: 20100224
  6. 5-FU [Suspect]
     Dosage: 800
     Route: 040
     Dates: start: 20100528
  7. 5-FU [Suspect]
     Dosage: 800
     Route: 040
     Dates: start: 20100727
  8. 5-FU [Suspect]
     Dosage: 4800
     Route: 041
     Dates: start: 20100528, end: 20100530
  9. OMEPRAZOLE [Concomitant]
     Indication: PROPHYLAXIS
     Dosage: 20 MG (DAILY DOSE), QD, ORAL
     Route: 048
     Dates: start: 20100113
  10. OXALIPLATIN [Suspect]
     Dosage: 170
     Route: 042
     Dates: start: 20100713, end: 20100713
  11. LEUCOVORINE [Suspect]
     Dosage: 800
     Route: 042
     Dates: start: 20100614, end: 20100614
  12. 5-FU [Suspect]
     Dosage: 800
     Route: 040
     Dates: start: 20100628
  13. 5-FU [Suspect]
     Dosage: 800
     Route: 040
     Dates: start: 20100713
  14. 5-FU [Suspect]
     Dosage: 800
     Route: 040
     Dates: start: 20100907
  15. 5-FU [Suspect]
     Dosage: 4800
     Route: 041
     Dates: start: 20100514, end: 20100516
  16. 5-FU [Suspect]
     Dosage: 4800
     Route: 041
     Dates: start: 20100614, end: 20100616
  17. 5-FU [Suspect]
     Dosage: 4800
     Route: 041
     Dates: start: 20100907, end: 20100909
  18. SORAFENIB (RAF KINASE INHIBITOR) [Suspect]
     Dosage: UNK, BID
     Dates: start: 20100305, end: 20100412
  19. SORAFENIB (RAF KINASE INHIBITOR) [Suspect]
     Dosage: UNK, BID
     Dates: start: 20100823, end: 20100906
  20. SORAFENIB (RAF KINASE INHIBITOR) [Suspect]
     Dosage: 400 MG, QD
     Dates: start: 20100907, end: 20100919
  21. OXALIPLATIN [Suspect]
     Indication: COLORECTAL CANCER METASTATIC
     Dosage: 170
     Route: 042
     Dates: start: 20100208, end: 20100208
  22. 5-FU [Suspect]
     Dosage: 800
     Route: 040
     Dates: start: 20100308
  23. 5-FU [Suspect]
     Dosage: 4800
     Route: 041
     Dates: start: 20100208, end: 20100210
  24. 5-FU [Suspect]
     Dosage: 800
     Route: 040
     Dates: start: 20100528
  25. 5-FU [Suspect]
     Dosage: 800
     Route: 040
     Dates: start: 20100614
  26. 5-FU [Suspect]
     Dosage: 4800
     Route: 041
     Dates: start: 20100810, end: 20100812
  27. 5-FU [Suspect]
     Dosage: 4800
     Route: 041
     Dates: start: 20100824, end: 20100826
  28. OXALIPLATIN [Suspect]
     Dosage: 170
     Route: 042
     Dates: start: 20100222, end: 20100222
  29. OXALIPLATIN [Suspect]
     Dosage: 170
     Route: 042
     Dates: start: 20100413, end: 20100413
  30. OXALIPLATIN [Suspect]
     Dosage: 170
     Route: 042
     Dates: start: 20100528, end: 20100528
  31. LEUCOVORINE [Suspect]
     Dosage: 800
     Route: 042
     Dates: start: 20100322, end: 20100322
  32. LEUCOVORINE [Suspect]
     Dosage: 800
     Route: 042
     Dates: start: 20100413, end: 20100413
  33. 5-FU [Suspect]
     Dosage: 4800
     Route: 041
     Dates: start: 20100308, end: 20100310
  34. 5-FU [Suspect]
     Dosage: 4800
     Route: 041
     Dates: start: 20100322, end: 20100324
  35. 5-FU [Suspect]
     Dosage: 4800
     Route: 041
     Dates: start: 20100713, end: 20100715
  36. LEUCOVORINE [Suspect]
     Dosage: 800
     Route: 042
     Dates: start: 20100810, end: 20100810
  37. 5-FU [Suspect]
     Indication: COLORECTAL CANCER METASTATIC
     Dosage: 800
     Route: 040
     Dates: start: 20100208
  38. 5-FU [Suspect]
     Dosage: 800
     Route: 040
     Dates: start: 20100222
  39. 5-FU [Suspect]
     Dosage: 800
     Route: 040
     Dates: start: 20100810
  40. 5-FU [Suspect]
     Dosage: 4800
     Route: 041
     Dates: start: 20100413, end: 20100415
  41. 5-FU [Suspect]
     Dosage: 4800
     Route: 041
     Dates: start: 20100628, end: 20100630
  42. SORAFENIB (RAF KINASE INHIBITOR) [Suspect]
     Dosage: UNK, BID
     Dates: start: 20100417, end: 20100512
  43. SORAFENIB (RAF KINASE INHIBITOR) [Suspect]
     Dosage: 400 MG, BID
     Dates: start: 20100513, end: 20100822
  44. OXALIPLATIN [Suspect]
     Dosage: 170
     Route: 042
     Dates: start: 20100322, end: 20100322
  45. OXALIPLATIN [Suspect]
     Dosage: 170
     Route: 042
     Dates: start: 20100727, end: 20100727
  46. OXALIPLATIN [Suspect]
     Dosage: 170
     Route: 042
     Dates: start: 20100810, end: 20100810
  47. LEUCOVORINE [Suspect]
     Dosage: 800
     Route: 042
     Dates: start: 20100514, end: 20100514
  48. LEUCOVORINE [Suspect]
     Dosage: 800
     Route: 042
     Dates: start: 20100713, end: 20100713
  49. 5-FU [Suspect]
     Dosage: 800
     Route: 040
     Dates: start: 20100514
  50. 5-FU [Suspect]
     Dosage: 800
     Route: 040
     Dates: start: 20100824
  51. 5-FU [Suspect]
     Dosage: 4800
     Route: 041
     Dates: start: 20100727, end: 20100729
  52. ONDANSETRON [Concomitant]
     Indication: PREMEDICATION
     Dosage: 8 MG (DAILY DOSE), QD,
     Dates: start: 20100208, end: 20100907
  53. SORAFENIB (RAF KINASE INHIBITOR) [Suspect]
     Indication: COLORECTAL CANCER STAGE IV
     Route: 048
     Dates: start: 20100208, end: 20100304
  54. OXALIPLATIN [Suspect]
     Dosage: 170
     Route: 042
     Dates: start: 20100614, end: 20100614
  55. OXALIPLATIN [Suspect]
     Dosage: 170
     Route: 042
     Dates: start: 20100628, end: 20100628
  56. LEUCOVORINE [Suspect]
     Indication: COLORECTAL CANCER METASTATIC
     Dosage: 800
     Route: 042
     Dates: start: 20100208, end: 20100208
  57. LEUCOVORINE [Suspect]
     Dosage: 800
     Route: 042
     Dates: start: 20100308, end: 20100308
  58. LEUCOVORINE [Suspect]
     Dosage: 800
     Route: 042
     Dates: start: 20100528, end: 20100528
  59. LEUCOVORINE [Suspect]
     Dosage: 800
     Route: 042
     Dates: start: 20100907, end: 20100907
  60. DEXAMETHASONE [Concomitant]
     Indication: PREMEDICATION
     Dosage: 20 MG (DAILY DOSE), QD,
     Dates: start: 20100208, end: 20100907
  61. SORAFENIB (RAF KINASE INHIBITOR) [Suspect]
     Dosage: 400 MG, BID
     Dates: start: 20100413, end: 20100416
  62. OXALIPLATIN [Suspect]
     Dosage: 170
     Route: 042
     Dates: start: 20100308, end: 20100308
  63. OXALIPLATIN [Suspect]
     Dosage: 170
     Route: 042
     Dates: start: 20100514, end: 20100514
  64. LEUCOVORINE [Suspect]
     Dosage: 800
     Route: 042
     Dates: start: 20100222, end: 20100222
  65. 5-FU [Suspect]
     Dosage: 800
     Route: 040
     Dates: start: 20100413
  66. 5-FU [Suspect]
     Dosage: 800
     Route: 040
     Dates: start: 20100614

REACTIONS (1)
  - MEDICAL DEVICE COMPLICATION [None]
